FAERS Safety Report 22041544 (Version 1)
Quarter: 2023Q1

REPORT INFORMATION
  Report Type: Spontaneous
  Country: US (occurrence: None)
  Receive Date: 20230224
  Receipt Date: 20230224
  Transmission Date: 20230417
  Serious: No
  Sender: FDA-Public Use
  Company Number: None

PATIENT
  Sex: Female
  Weight: 68.95 kg

DRUGS (20)
  1. PIQRAY [Suspect]
     Active Substance: ALPELISIB
     Indication: Breast cancer female
     Dosage: FREQUENCY : DAILY;?
     Route: 048
     Dates: start: 202206
  2. ACETAMINOPHEN [Concomitant]
     Active Substance: ACETAMINOPHEN
  3. ALBUTEROL [Concomitant]
     Active Substance: ALBUTEROL
  4. ATORVASTATIN [Concomitant]
     Active Substance: ATORVASTATIN
  5. BERGAMOT OIL [Concomitant]
     Active Substance: BERGAMOT OIL
  6. UNSPECIFIED INGREDIENT [Concomitant]
     Active Substance: UNSPECIFIED INGREDIENT
  7. CALCIUM\VITAMIN D [Concomitant]
     Active Substance: CALCIUM\VITAMIN D
  8. DOXYCYCLINE [Concomitant]
     Active Substance: DOXYCYCLINE
  9. FASLODEX [Concomitant]
     Active Substance: FULVESTRANT
  10. TEA [Concomitant]
     Active Substance: TEA LEAF
  11. LORATADINE [Concomitant]
     Active Substance: LORATADINE
  12. MEBENDAZOLE [Concomitant]
     Active Substance: MEBENDAZOLE
  13. METFORMIN [Concomitant]
     Active Substance: METFORMIN HYDROCHLORIDE
  14. NORCO [Concomitant]
     Active Substance: ACETAMINOPHEN\HYDROCODONE BITARTRATE
  15. QUERCETIN [Concomitant]
     Active Substance: QUERCETIN
  16. REISHI [Concomitant]
     Active Substance: REISHI
  17. HERBALS\TURMERIC [Concomitant]
     Active Substance: HERBALS\TURMERIC
  18. Vitamin B Complex Combinations [Concomitant]
  19. Vitamin CYN) [Concomitant]
  20. ZOMETA [Concomitant]
     Active Substance: ZOLEDRONIC ACID

REACTIONS (3)
  - Therapy cessation [None]
  - Breast cancer female [None]
  - Malignant neoplasm progression [None]
